FAERS Safety Report 4637167-6 (Version None)
Quarter: 2005Q2

REPORT INFORMATION
  Report Type: 
  Country: None (occurrence: None)
  Receive Date: 20050325
  Receipt Date: 20041124
  Transmission Date: 20051028
  Serious: No
  Sender: FDA-Public Use
  Company Number: USA040978204

PATIENT
  Age: 78 Year
  Sex: Female
  Weight: 67 kg

DRUGS (7)
  1. FORTEO [Suspect]
     Indication: OSTEOPOROSIS
     Dosage: 20 UG/1 DAY
     Dates: start: 20040910
  2. TOPROL-XL [Concomitant]
  3. ACCUPRIL [Concomitant]
  4. XANAX (ALPRAZOLAM DUM) [Concomitant]
  5. COUMADIN [Concomitant]
  6. AVAPRO [Concomitant]
  7. LIPITOR [Concomitant]

REACTIONS (2)
  - HEART RATE IRREGULAR [None]
  - NERVOUSNESS [None]
